FAERS Safety Report 9297729 (Version 1)
Quarter: 2013Q2

REPORT INFORMATION
  Report Type: Report from Study
  Country: JP (occurrence: JP)
  Receive Date: 20130520
  Receipt Date: 20130520
  Transmission Date: 20140414
  Serious: Yes (Hospitalization)
  Sender: FDA-Public Use
  Company Number: PHHY2013JP049397

PATIENT
  Age: 55 Year
  Sex: Female

DRUGS (1)
  1. LEPONEX / CLOZARIL [Suspect]
     Indication: SCHIZOPHRENIA
     Dosage: UNK
     Route: 048
     Dates: start: 20121003

REACTIONS (3)
  - Infectious pleural effusion [Unknown]
  - Pneumonia [Unknown]
  - Glucose tolerance impaired [Unknown]
